FAERS Safety Report 18088131 (Version 5)
Quarter: 2020Q4

REPORT INFORMATION
  Report Type: Report from Study
  Country: US (occurrence: US)
  Receive Date: 20200729
  Receipt Date: 20201203
  Transmission Date: 20210113
  Serious: Yes (Life-Threatening, Hospitalization, Disabling, Other)
  Sender: FDA-Public Use
  Company Number: NVSC2020US207462

PATIENT
  Age: 58 Year
  Sex: Female

DRUGS (1)
  1. ENTRESTO [Suspect]
     Active Substance: SACUBITRIL\VALSARTAN
     Indication: PRODUCT USED FOR UNKNOWN INDICATION
     Dosage: 1 DF, QD
     Route: 065

REACTIONS (23)
  - Speech disorder [Recovering/Resolving]
  - Fluid retention [Unknown]
  - Asthma [Unknown]
  - Oropharyngeal discomfort [Unknown]
  - Abdominal mass [Not Recovered/Not Resolved]
  - Cardiac failure [Recovered/Resolved with Sequelae]
  - Fatigue [Unknown]
  - Memory impairment [Unknown]
  - Product prescribing error [Unknown]
  - Pericardial effusion [Unknown]
  - Ventricular fibrillation [Unknown]
  - Head injury [Recovered/Resolved with Sequelae]
  - Skin abrasion [Unknown]
  - Cardiac disorder [Unknown]
  - Cough [Unknown]
  - Cardiac failure [Recovered/Resolved with Sequelae]
  - Fall [Unknown]
  - Blood potassium decreased [Unknown]
  - Carcinoembryonic antigen increased [Unknown]
  - Vitamin D deficiency [Unknown]
  - Product dose omission issue [Unknown]
  - Inappropriate schedule of product administration [Unknown]
  - Atrial fibrillation [Unknown]

NARRATIVE: CASE EVENT DATE: 20200904
